FAERS Safety Report 18179497 (Version 1)
Quarter: 2020Q3

REPORT INFORMATION
  Report Type: Spontaneous
  Country: ES (occurrence: ES)
  Receive Date: 20200821
  Receipt Date: 20200821
  Transmission Date: 20201103
  Serious: Yes (Hospitalization)
  Sender: FDA-Public Use
  Company Number: ES-TEVA-2020-ES-1816031

PATIENT
  Age: 70 Year
  Sex: Male

DRUGS (2)
  1. HIDROXICLOROQUINA (2143A) [Suspect]
     Active Substance: HYDROXYCHLOROQUINE
     Dosage: 400MG
     Route: 048
     Dates: start: 20200331, end: 20200404
  2. HIDROXICLOROQUINA (2143A) [Suspect]
     Active Substance: HYDROXYCHLOROQUINE
     Indication: COVID-19 PNEUMONIA
     Dosage: 400 MG / 12H 1 DAY FOLLOWED BY 400 MG DAY, UNIT DOSE: 400MG
     Route: 048
     Dates: start: 20200330, end: 20200330

REACTIONS (2)
  - Renal colic [Recovered/Resolved]
  - Hepatitis [Recovered/Resolved]

NARRATIVE: CASE EVENT DATE: 20200402
